FAERS Safety Report 4297685-X (Version None)
Quarter: 2004Q1

REPORT INFORMATION
  Report Type: 
  Country: None (occurrence: None)
  Receive Date: 20040213
  Receipt Date: 20030130
  Transmission Date: 20041129
  Serious: Yes (Life-Threatening)
  Sender: FDA-Public Use
  Company Number: RENA-10880

PATIENT
  Age: 56 Year
  Sex: Female

DRUGS (2)
  1. PHOSBLOCK [Suspect]
     Indication: HYPERPHOSPHATAEMIA
     Dosage: 1.25 G DAILY PO
     Route: 048
  2. NIFEDIPINE [Concomitant]

REACTIONS (1)
  - CEREBRAL HAEMORRHAGE [None]
